FAERS Safety Report 4359039-7 (Version None)
Quarter: 2004Q2

REPORT INFORMATION
  Report Type: 
  Country: None (occurrence: None)
  Receive Date: 20040517
  Receipt Date: 20040506
  Transmission Date: 20050107
  Serious: Yes (Other)
  Sender: FDA-Public Use
  Company Number: GB-GLAXOSMITHKLINE-B0332063A

PATIENT
  Sex: Male

DRUGS (1)
  1. SEROXAT [Suspect]
     Indication: ANXIETY
     Route: 048

REACTIONS (11)
  - ACTIVITIES OF DAILY LIVING IMPAIRED [None]
  - AFFECT LABILITY [None]
  - AGGRESSION [None]
  - ANGER [None]
  - ANTISOCIAL BEHAVIOUR [None]
  - ILL-DEFINED DISORDER [None]
  - IMPAIRED SELF-CARE [None]
  - INJURY [None]
  - LETHARGY [None]
  - MOOD SWINGS [None]
  - PERSONALITY CHANGE [None]
